FAERS Safety Report 17861696 (Version 1)
Quarter: 2020Q2

REPORT INFORMATION
  Report Type: Spontaneous
  Country: US (occurrence: US)
  Receive Date: 20200604
  Receipt Date: 20200604
  Transmission Date: 20200714
  Serious: Yes (Hospitalization)
  Sender: FDA-Public Use
  Company Number: US-PERRIGO-20US007952

PATIENT
  Age: 56 Year
  Sex: Female

DRUGS (8)
  1. PRILOSEC [Suspect]
     Active Substance: OMEPRAZOLE MAGNESIUM
     Dosage: 40 MG, QD
     Route: 048
     Dates: start: 2005, end: 2006
  2. PRILOSEC [Suspect]
     Active Substance: OMEPRAZOLE MAGNESIUM
     Indication: GASTROOESOPHAGEAL REFLUX DISEASE
     Dosage: 20 MG, QD
     Route: 048
     Dates: start: 2003, end: 2006
  3. NEXIUM [Suspect]
     Active Substance: ESOMEPRAZOLE MAGNESIUM
     Indication: GASTROOESOPHAGEAL REFLUX DISEASE
     Dosage: 40 MG, QD
     Route: 048
     Dates: start: 201404, end: 201412
  4. PROTONIX                           /00661201/ [Suspect]
     Active Substance: OMEPRAZOLE
     Indication: GASTROOESOPHAGEAL REFLUX DISEASE
     Dosage: 40 MG, QD
     Route: 048
     Dates: start: 20170601, end: 20191204
  5. PANTOPRAZOLE [Suspect]
     Active Substance: PANTOPRAZOLE
     Indication: GASTROOESOPHAGEAL REFLUX DISEASE
     Dosage: 40 MG, QD
     Route: 048
     Dates: start: 20150722
  6. PREVACID 24 HR [Suspect]
     Active Substance: LANSOPRAZOLE
     Indication: GASTROOESOPHAGEAL REFLUX DISEASE
     Dosage: 15 MG, QD
     Route: 048
     Dates: start: 2009, end: 2015
  7. PREVACID [Suspect]
     Active Substance: LANSOPRAZOLE
     Indication: GASTROOESOPHAGEAL REFLUX DISEASE
     Dosage: 30 MG, QD
     Route: 048
     Dates: start: 2010, end: 2012
  8. PANTOPRAZOLE [Suspect]
     Active Substance: PANTOPRAZOLE
     Indication: PRODUCT USED FOR UNKNOWN INDICATION
     Dosage: 40 MG, QD
     Route: 048
     Dates: start: 20170617, end: 20200102

REACTIONS (26)
  - Urine abnormality [Unknown]
  - Ureterolithiasis [Unknown]
  - Hypertensive nephropathy [Unknown]
  - Diabetic nephropathy [Unknown]
  - Acute kidney injury [Not Recovered/Not Resolved]
  - Device dependence [Unknown]
  - Nephritic syndrome [Unknown]
  - Proteinuria [Unknown]
  - Renal tubular necrosis [Unknown]
  - Glomerulonephritis [Unknown]
  - Nephrolithiasis [Unknown]
  - Urine output decreased [Unknown]
  - Dialysis [Not Recovered/Not Resolved]
  - Chronic kidney disease [Not Recovered/Not Resolved]
  - Renal impairment [Unknown]
  - Kidney fibrosis [Unknown]
  - Dysuria [Recovered/Resolved]
  - Nephrotic syndrome [Unknown]
  - Haematuria [Unknown]
  - Renal disorder [Unknown]
  - Haemodialysis [Unknown]
  - Renal failure [Unknown]
  - Nephropathy [Unknown]
  - End stage renal disease [Not Recovered/Not Resolved]
  - Nephrogenic anaemia [Unknown]
  - Glomerulonephritis membranous [Unknown]

NARRATIVE: CASE EVENT DATE: 201611
